FAERS Safety Report 4302698-5 (Version None)
Quarter: 2004Q1

REPORT INFORMATION
  Report Type: 
  Country: None (occurrence: None)
  Receive Date: 20040126
  Receipt Date: 20031014
  Transmission Date: 20041129
  Serious: No
  Sender: FDA-Public Use
  Company Number: USA031049850

PATIENT
  Age: 12 Year
  Sex: Female

DRUGS (4)
  1. STRATTERA [Suspect]
     Dosage: 80 MG/DAY
  2. CELEXA [Concomitant]
  3. QUINIDINE HCL [Concomitant]
  4. CONCERTA [Concomitant]

REACTIONS (1)
  - SEXUAL DYSFUNCTION [None]
